FAERS Safety Report 5680641-4 (Version None)
Quarter: 2008Q1

REPORT INFORMATION
  Report Type: 
  Country: None (occurrence: None)
  Receive Date: 20080326
  Receipt Date: 20080225
  Transmission Date: 20080703
  Serious: No
  Sender: FDA-Public Use
  Company Number: A0703869A

PATIENT
  Age: 65 Year
  Sex: Female

DRUGS (11)
  1. FLOVENT [Suspect]
     Indication: ASTHMA
     Dosage: 1PUFF TWICE PER DAY
     Route: 055
  2. PROVENTIL [Concomitant]
     Route: 055
  3. SPIRIVA [Concomitant]
     Route: 055
  4. SEREVENT [Concomitant]
     Route: 055
  5. SINGULAIR [Concomitant]
  6. VENTOLIN [Concomitant]
  7. ALDACTONE [Concomitant]
     Route: 048
  8. TRIMIPRAMINE MALEATE [Concomitant]
  9. CLIMARA [Concomitant]
  10. ZETIA [Concomitant]
  11. ACTONEL [Concomitant]
     Route: 048

REACTIONS (1)
  - DYSPHONIA [None]
